FAERS Safety Report 10219496 (Version 1)
Quarter: 2014Q2

REPORT INFORMATION
  Report Type: Spontaneous
  Country: US (occurrence: None)
  Receive Date: 20140604
  Receipt Date: 20140604
  Transmission Date: 20141212
  Serious: Yes (Life-Threatening)
  Sender: FDA-Public Use
  Company Number: None

PATIENT
  Age: 33 Year
  Sex: Female
  Weight: 70 kg

DRUGS (2)
  1. ZOFRAN [Suspect]
     Indication: NAUSEA
     Route: 060
     Dates: start: 20140531, end: 20140531
  2. MORPHINE [Concomitant]

REACTIONS (5)
  - Heart rate increased [None]
  - Restlessness [None]
  - Anxiety [None]
  - Electrocardiogram QT prolonged [None]
  - Condition aggravated [None]
